FAERS Safety Report 5405445-9 (Version None)
Quarter: 2007Q3

REPORT INFORMATION
  Report Type: 
  Country: None (occurrence: None)
  Receive Date: 20070803
  Receipt Date: 20070727
  Transmission Date: 20080115
  Serious: Yes (Other)
  Sender: FDA-Public Use
  Company Number: US-PFIZER INC-2007037188

PATIENT
  Sex: Male
  Weight: 102.1 kg

DRUGS (6)
  1. VIAGRA [Suspect]
     Dates: start: 19980416, end: 20040222
  2. AMBIEN [Concomitant]
  3. ZOCOR [Concomitant]
  4. DELATESTRYL [Concomitant]
     Dates: start: 20000401
  5. IBUPROFEN [Concomitant]
  6. ASPIRIN [Concomitant]

REACTIONS (2)
  - BLINDNESS [None]
  - OPTIC ISCHAEMIC NEUROPATHY [None]
